FAERS Safety Report 24228614 (Version 1)
Quarter: 2024Q3

REPORT INFORMATION
  Report Type: Spontaneous
  Country: US (occurrence: US)
  Receive Date: 20240820
  Receipt Date: 20240820
  Transmission Date: 20241016
  Serious: Yes (Hospitalization, Other)
  Sender: SANOFI AVENTIS
  Company Number: US-SA-SAC20240819000023

PATIENT
  Age: 81 Year
  Sex: Female

DRUGS (12)
  1. DUPIXENT [Suspect]
     Active Substance: DUPILUMAB
     Indication: Asthma
     Dosage: 300 MG, QOW
     Route: 058
  2. SPIRIVA [Suspect]
     Active Substance: TIOTROPIUM BROMIDE MONOHYDRATE
     Dosage: UNK
  3. ATORVASTATIN [Concomitant]
     Active Substance: ATORVASTATIN
  4. BUDESONIDE [Concomitant]
     Active Substance: BUDESONIDE
  5. CLOPIDOGREL [Concomitant]
     Active Substance: CLOPIDOGREL BISULFATE
  6. ELIQUIS [Concomitant]
     Active Substance: APIXABAN
  7. GABAPENTIN [Concomitant]
     Active Substance: GABAPENTIN
     Dosage: 800MG
  8. IBUPROFEN [Concomitant]
     Active Substance: IBUPROFEN
  9. NEBIVOLOL [Concomitant]
     Active Substance: NEBIVOLOL
  10. PREDNISONE [Concomitant]
     Active Substance: PREDNISONE
  11. TRAMADOL HCL [Concomitant]
     Active Substance: TRAMADOL HYDROCHLORIDE
  12. TYLENOL [Concomitant]
     Active Substance: ACETAMINOPHEN

REACTIONS (8)
  - Atrial fibrillation [Unknown]
  - Pulmonary fibrosis [Unknown]
  - Muscle spasms [Unknown]
  - Bronchospasm [Unknown]
  - Dyspnoea [Unknown]
  - Chest pain [Unknown]
  - Dizziness [Unknown]
  - Arthralgia [Unknown]

NARRATIVE: CASE EVENT DATE: 20240801
